FAERS Safety Report 6894594-4 (Version None)
Quarter: 2010Q3

REPORT INFORMATION
  Report Type: 
  Country: None (occurrence: None)
  Receive Date: 20100802
  Receipt Date: 20100720
  Transmission Date: 20110219
  Serious: Yes (Other)
  Sender: FDA-Public Use
  Company Number: PHHY2010US36050

PATIENT
  Sex: Male

DRUGS (11)
  1. TEKTURNA [Suspect]
     Indication: HYPERTENSION
     Dosage: 300 MG, QD
     Route: 048
     Dates: start: 20091218, end: 20100407
  2. JANUVIA [Concomitant]
     Dosage: 100 MG, QD
     Route: 048
  3. METFORMIN [Concomitant]
     Dosage: 1000 MG, QD
     Route: 048
  4. LIPITOR [Concomitant]
     Dosage: 20 MG, QD
     Route: 048
  5. ACTOS [Concomitant]
     Dosage: 30 MG, QD
     Route: 048
  6. LASIX [Concomitant]
     Dosage: 40 MG, QD
     Route: 048
  7. COREG [Concomitant]
     Dosage: 80 MG, QD
     Route: 048
  8. LISINOPRIL [Concomitant]
     Dosage: 20 MG, QD
     Route: 048
  9. ASPIRIN [Concomitant]
     Dosage: 8 MG, QD
     Route: 048
  10. LOVAZA [Concomitant]
     Dosage: 2 G, QD
     Route: 048
  11. LEVEMIR [Concomitant]
     Dosage: 400

REACTIONS (4)
  - BLOOD CREATININE INCREASED [None]
  - GLYCOSYLATED HAEMOGLOBIN INCREASED [None]
  - RENAL ISCHAEMIA [None]
  - RENAL VESSEL DISORDER [None]
